FAERS Safety Report 8411914-X (Version None)
Quarter: 2012Q2

REPORT INFORMATION
  Report Type: 
  Country: None (occurrence: None)
  Receive Date: 20120605
  Receipt Date: 20120515
  Transmission Date: 20120825
  Serious: No
  Sender: FDA-Public Use
  Company Number: US-AMGEN-USASP2012030584

PATIENT
  Age: 48 Year
  Sex: Female

DRUGS (1)
  1. ENBREL [Suspect]
     Indication: PSORIASIS
     Dosage: 50 MG, QWK
     Dates: start: 20100101, end: 20120428

REACTIONS (6)
  - INJECTION SITE HAEMATOMA [None]
  - INJECTION SITE PAIN [None]
  - CHILLS [None]
  - PAIN [None]
  - VISION BLURRED [None]
  - COLD SWEAT [None]
